FAERS Safety Report 8073445-9 (Version None)
Quarter: 2011Q4

REPORT INFORMATION
  Report Type: 
  Country: None (occurrence: None)
  Receive Date: 20111221
  Receipt Date: 20110915
  Transmission Date: 20120403
  Serious: Yes (Hospitalization)
  Sender: FDA-Public Use
  Company Number: PHHY2011US26340

PATIENT
  Age: 44 Year
  Sex: Male
  Weight: 90 kg

DRUGS (7)
  1. CHLORDIAZEPOXIDE W/AMITRIPTYLINE (AMITRIPTYLINE, CHLORDIAZEPOXIDE) [Concomitant]
  2. HYDREA [Concomitant]
  3. FOLIC ACID [Concomitant]
  4. CALCIUM CARBONATE [Concomitant]
  5. EXJADE [Suspect]
     Indication: BLOOD COUNT ABNORMAL
     Dosage: 1500 MG, DAILY, ORAL
     Route: 048
     Dates: start: 20101210, end: 20110801
  6. EXJADE [Suspect]
     Indication: SICKLE CELL ANAEMIA
     Dosage: 1500 MG, DAILY, ORAL
     Route: 048
     Dates: start: 20101210, end: 20110801
  7. MS CONTIN [Concomitant]

REACTIONS (1)
  - SICKLE CELL ANAEMIA WITH CRISIS [None]
